FAERS Safety Report 8702540 (Version 2)
Quarter: 2012Q4

REPORT INFORMATION
  Report Type: 
  Country: US (occurrence: US)
  Receive Date: 20120803
  Receipt Date: 20121102
  Transmission Date: 20130627
  Serious: Yes (Other)
  Sender: FDA-Public Use
  Company Number: US-PFIZER INC-2012185702

PATIENT
  Age: 31 Year
  Sex: Female
  Weight: 102 kg

DRUGS (2)
  1. LYRICA [Suspect]
     Indication: FIBROMYALGIA
     Dosage: 150 mg, 3x/day
     Route: 048
  2. TOBRAMYCIN [Concomitant]
     Dosage: UNK

REACTIONS (2)
  - Eye disorder [Unknown]
  - Somnolence [Unknown]
